FAERS Safety Report 6913126-5 (Version None)
Quarter: 2010Q3

REPORT INFORMATION
  Report Type: 
  Country: None (occurrence: None)
  Receive Date: 20100806
  Receipt Date: 20090805
  Transmission Date: 20110219
  Serious: No
  Sender: FDA-Public Use
  Company Number: US-PFIZER INC-2009232832

PATIENT
  Age: 77 Year
  Sex: Female
  Weight: 59.9 kg

DRUGS (11)
  1. DETROL LA [Suspect]
     Indication: URINARY INCONTINENCE
     Dosage: UNK
  2. TOVIAZ [Suspect]
     Indication: URINARY INCONTINENCE
     Dosage: 4 MG, 1X/DAY
     Route: 048
     Dates: start: 20090511, end: 20090612
  3. IBANDRONATE SODIUM [Concomitant]
     Dosage: UNK
  4. BENICAR HCT [Concomitant]
     Dosage: UNK
  5. CALCIUM WITH VITAMIN D [Concomitant]
     Dosage: UNK
  6. LUNESTA [Concomitant]
     Dosage: UNK
  7. AMBIEN [Concomitant]
     Dosage: UNK
  8. OMEPRAZOLE [Concomitant]
     Dosage: UNK
  9. CLINORIL [Concomitant]
     Dosage: UNK
  10. PREDNISONE [Concomitant]
     Dosage: UNK
  11. K-DUR [Concomitant]
     Dosage: UNK

REACTIONS (3)
  - DRUG INEFFECTIVE [None]
  - JOINT SWELLING [None]
  - NASAL CONGESTION [None]
